FAERS Safety Report 18277928 (Version 5)
Quarter: 2020Q4

REPORT INFORMATION
  Report Type: Spontaneous
  Country: JP (occurrence: JP)
  Receive Date: 20200917
  Receipt Date: 20201116
  Transmission Date: 20210113
  Serious: Yes (Life-Threatening, Hospitalization, Other)
  Sender: FDA-Public Use
  Company Number: JP-PFIZER INC-2020358392

PATIENT
  Age: 40 Year
  Sex: Female
  Weight: 57.5 kg

DRUGS (2)
  1. SOMAVERT [Suspect]
     Active Substance: PEGVISOMANT
     Indication: ACROMEGALY
     Dosage: 20 MG, 1X/DAY
     Route: 058
     Dates: start: 20100625
  2. SANDOSTATIN LAR DEPOT [Concomitant]
     Active Substance: OCTREOTIDE ACETATE
     Dosage: UNK
     Dates: end: 20101210

REACTIONS (10)
  - Pyrexia [Recovered/Resolved]
  - Decreased appetite [Unknown]
  - Meningitis [Recovered/Resolved]
  - Sinus bradycardia [Unknown]
  - Nausea [Unknown]
  - Headache [Recovered/Resolved]
  - Inflammation [Unknown]
  - Acute sinusitis [Recovered/Resolved]
  - Vomiting [Unknown]
  - Cerebrospinal fluid leakage [Recovered/Resolved]

NARRATIVE: CASE EVENT DATE: 20200718
